FAERS Safety Report 5856935-6 (Version None)
Quarter: 2008Q3

REPORT INFORMATION
  Report Type: 
  Country: None (occurrence: None)
  Receive Date: 20080822
  Receipt Date: 20080822
  Transmission Date: 20090109
  Serious: No
  Sender: FDA-Public Use
  Company Number: None

PATIENT
  Sex: Male
  Weight: 72.5755 kg

DRUGS (2)
  1. PROZAC [Suspect]
     Indication: BULIMIA NERVOSA
     Dosage: 100 MG PO QAM
     Route: 048
  2. PROZAC [Suspect]
     Indication: OBSESSIVE-COMPULSIVE DISORDER
     Dosage: 100 MG PO QAM
     Route: 048

REACTIONS (1)
  - DRUG EFFECT DECREASED [None]
